FAERS Safety Report 8807307 (Version 1)
Quarter: 2012Q4

REPORT INFORMATION
  Report Type: 
  Country: IN (occurrence: IN)
  Receive Date: 20120925
  Receipt Date: 20120925
  Transmission Date: 20130627
  Serious: Yes (Death)
  Sender: FDA-Public Use
  Company Number: IN-WATSON-2012-16433

PATIENT
  Age: 8 Year
  Sex: Female

DRUGS (2)
  1. NAPROXEN [Suspect]
     Indication: JUVENILE ARTHRITIS
     Dosage: UNK
     Route: 065
  2. ANTIMALARIALS [Concomitant]
     Indication: PRODUCT USED FOR UNKNOWN INDICATION
     Route: 065

REACTIONS (5)
  - Histiocytosis haematophagic [Fatal]
  - Shock [Fatal]
  - Pulmonary haemorrhage [Fatal]
  - Pyrexia [None]
  - General physical health deterioration [None]
